FAERS Safety Report 12695307 (Version 5)
Quarter: 2017Q2

REPORT INFORMATION
  Report Type: Spontaneous
  Country: JP (occurrence: JP)
  Receive Date: 20160829
  Receipt Date: 20170426
  Transmission Date: 20170830
  Serious: Yes (Other)
  Sender: FDA-Public Use
  Company Number: JP-DSJP-DSJ-2016-127898

PATIENT
  Age: 84 Year
  Sex: Male

DRUGS (1)
  1. LIXIANA TABLETS 60MG [Suspect]
     Active Substance: EDOXABAN TOSYLATE
     Indication: ATRIAL FIBRILLATION
     Dosage: 30 MG, QD
     Route: 048
     Dates: start: 20160722

REACTIONS (2)
  - Urinary tract infection [Unknown]
  - Melaena [Unknown]
